FAERS Safety Report 5643575-7 (Version None)
Quarter: 2008Q1

REPORT INFORMATION
  Report Type: 
  Country: None (occurrence: None)
  Receive Date: 20080228
  Receipt Date: 20080219
  Transmission Date: 20080703
  Serious: Yes (Other)
  Sender: FDA-Public Use
  Company Number: GB-PFIZER INC-2008016799

PATIENT
  Age: 46 Year
  Sex: Male

DRUGS (2)
  1. CHANTIX [Suspect]
     Indication: SMOKING CESSATION THERAPY
     Route: 048
  2. CLARITHROMYCIN [Concomitant]

REACTIONS (3)
  - HYPERSENSITIVITY [None]
  - NASAL CONGESTION [None]
  - PRURITUS [None]
